FAERS Safety Report 7632643-6 (Version None)
Quarter: 2011Q3

REPORT INFORMATION
  Report Type: 
  Country: None (occurrence: None)
  Receive Date: 20110725
  Receipt Date: 20101108
  Transmission Date: 20111222
  Serious: No
  Sender: FDA-Public Use
  Company Number: US-BRISTOL-MYERS SQUIBB COMPANY-15372345

PATIENT
  Age: 77 Year
  Sex: Female

DRUGS (2)
  1. COUMADIN [Suspect]
     Indication: HIP ARTHROPLASTY
     Dosage: STARTED WITH ONE, THEN ONE AND A HALF PILLS;INCREASED TO 2 PILLS
     Dates: start: 20100101
  2. GLIPIZIDE [Concomitant]

REACTIONS (4)
  - DIARRHOEA [None]
  - PAIN IN EXTREMITY [None]
  - FEELING JITTERY [None]
  - CHILLS [None]
